FAERS Safety Report 8605931-4 (Version None)
Quarter: 2012Q3

REPORT INFORMATION
  Report Type: 
  Country: None (occurrence: None)
  Receive Date: 20120820
  Receipt Date: 20120814
  Transmission Date: 20120928
  Serious: Yes (Hospitalization, Other)
  Sender: FDA-Public Use
  Company Number: ES-ROXANE LABORATORIES, INC.-2012-RO-01696RO

PATIENT
  Age: 74 Year
  Sex: Female

DRUGS (3)
  1. PREDNISONE TAB [Suspect]
     Indication: SPONDYLOARTHROPATHY
     Dosage: 5 MG
  2. INFLIXIMAB [Suspect]
     Indication: CROHN'S DISEASE
  3. AZATHIOPRINE SODIUM [Suspect]
     Indication: CROHN'S DISEASE

REACTIONS (4)
  - CAT SCRATCH DISEASE [None]
  - CAMPYLOBACTER INFECTION [None]
  - SEPTIC SHOCK [None]
  - CROHN'S DISEASE [None]
